FAERS Safety Report 5290592-5 (Version None)
Quarter: 2007Q2

REPORT INFORMATION
  Report Type: 
  Country: None (occurrence: None)
  Receive Date: 20070405
  Receipt Date: 20070405
  Transmission Date: 20071010
  Serious: No
  Sender: FDA-Public Use
  Company Number: None

PATIENT
  Sex: Female
  Weight: 62.5964 kg

DRUGS (2)
  1. PROCRIT [Suspect]
     Indication: REFRACTORY ANAEMIA
  2. ARANESP [Suspect]
     Indication: REFRACTORY ANAEMIA

REACTIONS (1)
  - OFF LABEL USE [None]
